FAERS Safety Report 9312760 (Version 1)
Quarter: 2013Q2

REPORT INFORMATION
  Report Type: Spontaneous
  Country: US (occurrence: US)
  Receive Date: 20130528
  Receipt Date: 20130528
  Transmission Date: 20140414
  Serious: Yes (Hospitalization)
  Sender: FDA-Public Use
  Company Number: US-GILEAD-2013-0073792

PATIENT
  Age: 37 Year
  Sex: Female

DRUGS (5)
  1. STRIBILD [Suspect]
     Indication: HIV INFECTION
     Dosage: UNK
     Dates: start: 20121118, end: 20121202
  2. BACTRIM [Concomitant]
     Indication: PRODUCT USED FOR UNKNOWN INDICATION
  3. DIFLUCAN [Concomitant]
     Indication: COCCIDIOIDOMYCOSIS
     Dosage: 400 MG, QD
     Dates: start: 20121011
  4. DIFLUCAN [Concomitant]
     Dosage: 600 MG, QD
     Dates: start: 20120919
  5. AZITHROMYCIN [Concomitant]
     Indication: PRODUCT USED FOR UNKNOWN INDICATION

REACTIONS (3)
  - Lung infiltration [Unknown]
  - Pyrexia [Recovered/Resolved]
  - Rash generalised [Recovered/Resolved]
